FAERS Safety Report 24407349 (Version 1)
Quarter: 2024Q4

REPORT INFORMATION
  Report Type: Spontaneous
  Country: CN (occurrence: CN)
  Receive Date: 20241007
  Receipt Date: 20241007
  Transmission Date: 20250114
  Serious: Yes (Other)
  Sender: SANOFI AVENTIS
  Company Number: CN-SA-2024SA287154

PATIENT
  Age: 52 Year
  Sex: Female
  Weight: 38 kg

DRUGS (3)
  1. OXALIPLATIN [Suspect]
     Active Substance: OXALIPLATIN
     Indication: Cholangiocarcinoma
     Dosage: 200 MG, QD
     Route: 041
     Dates: start: 20240929, end: 20240929
  2. DEXTROSE [Concomitant]
     Active Substance: DEXTROSE MONOHYDRATE
     Indication: Vehicle solution use
     Dosage: 500ML
     Dates: start: 20240929
  3. DEXTROSE [Concomitant]
     Active Substance: DEXTROSE MONOHYDRATE
     Dosage: 100ML

REACTIONS (7)
  - Neurotoxicity [Recovering/Resolving]
  - Tachypnoea [Recovering/Resolving]
  - Pharyngeal hypoaesthesia [Recovering/Resolving]
  - Speech disorder [Recovering/Resolving]
  - Hyperhidrosis [Recovering/Resolving]
  - Chest discomfort [Recovering/Resolving]
  - Hypoaesthesia [Recovering/Resolving]

NARRATIVE: CASE EVENT DATE: 20240929
